FAERS Safety Report 8805598 (Version 2)
Quarter: 2013Q1

REPORT INFORMATION
  Report Type: Report from Study
  Country: CN (occurrence: CN)
  Receive Date: 20120924
  Receipt Date: 20130329
  Transmission Date: 20140127
  Serious: Yes (Death)
  Sender: FDA-Public Use
  Company Number: CN-ROCHE-1132066

PATIENT
  Sex: Male

DRUGS (3)
  1. MYCOPHENOLATE MOFETIL [Suspect]
     Indication: LIVER TRANSPLANT
     Route: 048
     Dates: start: 20120417
  2. PREDNISONE [Suspect]
     Indication: LIVER TRANSPLANT
     Route: 048
  3. TACROLIMUS [Concomitant]
     Indication: LIVER TRANSPLANT
     Route: 048

REACTIONS (1)
  - Neoplasm recurrence [Fatal]
